FAERS Safety Report 8120514-0 (Version None)
Quarter: 2012Q1

REPORT INFORMATION
  Report Type: 
  Country: None (occurrence: None)
  Receive Date: 20120207
  Receipt Date: 20120131
  Transmission Date: 20120608
  Serious: Yes (Other)
  Sender: FDA-Public Use
  Company Number: PHEH2007US05476

PATIENT
  Sex: Female

DRUGS (14)
  1. LIPITOR [Concomitant]
     Dosage: 20 MG, UNK
     Dates: start: 20051001
  2. METRONIDAZOLE [Concomitant]
     Dosage: 500 MG, UNK
     Dates: start: 20070301
  3. HYDROCHLOROTHIAZIDE [Concomitant]
  4. CLARITIN [Concomitant]
  5. NIFEDIAC CC [Concomitant]
     Dosage: 60 MG, UNK
     Dates: start: 20051101
  6. PAROXETINE HYDROCHLORIDE [Concomitant]
     Dosage: 20 MG, UNK
     Dates: start: 20051101
  7. BISOPROLOL FUMARATE AND HYDROCHLOROTHIAZIDE [Concomitant]
     Dosage: UNK UKN, UNK
     Dates: start: 20051101
  8. NIFEDIPINE [Concomitant]
     Dosage: 60 MG, UNK
     Dates: start: 20070101
  9. PENICILLIN VK [Concomitant]
     Dosage: 500 MG, UNK
     Dates: start: 20070301
  10. AREDIA [Suspect]
  11. GABAPENTIN [Concomitant]
     Dosage: 300 MG, UNK
     Dates: start: 20060501
  12. ZOMETA [Suspect]
     Dosage: UNK UKN, UNK
  13. FEMARA [Concomitant]
     Dosage: 2.5 MG, UNK
     Dates: start: 20051101
  14. ACETAMINOPHEN AND HYDROCODONE BITARTRATE [Concomitant]
     Dosage: UNK UKN, UNK
     Dates: start: 20070301

REACTIONS (25)
  - SOFT TISSUE DISORDER [None]
  - VAGINAL INFECTION [None]
  - NEUROPATHY PERIPHERAL [None]
  - TENDON DISORDER [None]
  - PYREXIA [None]
  - EXPOSED BONE IN JAW [None]
  - DIVERTICULUM INTESTINAL HAEMORRHAGIC [None]
  - PAIN [None]
  - METASTATIC NEOPLASM [None]
  - FIBROUS HISTIOCYTOMA [None]
  - XANTHOMA [None]
  - BONE PAIN [None]
  - HAEMORRHOIDS [None]
  - EXOSTOSIS [None]
  - OSTEOARTHRITIS [None]
  - RENAL CYST [None]
  - SWELLING FACE [None]
  - DYSURIA [None]
  - LENTIGO [None]
  - OSTEONECROSIS OF JAW [None]
  - ANXIETY [None]
  - DIASTOLIC DYSFUNCTION [None]
  - HYPERAESTHESIA [None]
  - INJURY [None]
  - VENTRICULAR HYPERTROPHY [None]
